FAERS Safety Report 5642005-9 (Version None)
Quarter: 2008Q1

REPORT INFORMATION
  Report Type: 
  Country: None (occurrence: None)
  Receive Date: 20080227
  Receipt Date: 20080215
  Transmission Date: 20080703
  Serious: Yes (Death, Other)
  Sender: FDA-Public Use
  Company Number: DO-PFIZER INC-2008015243

PATIENT
  Age: 6 Month
  Sex: Female
  Weight: 7 kg

DRUGS (5)
  1. ZITHROMAX [Suspect]
     Indication: BRONCHOPNEUMONIA
     Dosage: DAILY DOSE:250MG
     Route: 042
     Dates: start: 20061018, end: 20061018
  2. NEO MELUBRINA [Concomitant]
  3. GRAVOL TAB [Concomitant]
  4. ZINNAT [Concomitant]
  5. AZITHROMYCIN [Concomitant]

REACTIONS (5)
  - CYANOSIS [None]
  - DYSPNOEA [None]
  - PALLOR [None]
  - RESPIRATORY ARREST [None]
  - SECRETION DISCHARGE [None]
